FAERS Safety Report 9176537 (Version 1)
Quarter: 2013Q1

REPORT INFORMATION
  Report Type: Spontaneous
  Country: JP (occurrence: None)
  Receive Date: 20130319
  Receipt Date: 20130319
  Transmission Date: 20140127
  Serious: Yes (Other)
  Sender: FDA-Public Use
  Company Number: ENT 2013-0052

PATIENT
  Age: 72 Year
  Sex: Female

DRUGS (4)
  1. COMTAN (ENTACAPONE) [Suspect]
     Indication: PARKINSON^S DISEASE
     Route: 048
  2. BENZALIN [Concomitant]
  3. ETIZOLAM [Concomitant]
  4. NEODOPASTON [Concomitant]

REACTIONS (1)
  - Blood potassium increased [None]
